FAERS Safety Report 20649666 (Version 6)
Quarter: 2023Q2

REPORT INFORMATION
  Report Type: Spontaneous
  Country: US (occurrence: US)
  Receive Date: 20220329
  Receipt Date: 20230601
  Transmission Date: 20230722
  Serious: Yes (Hospitalization)
  Sender: FDA-Public Use
  Company Number: US-KARYOPHARM-2022KPT000358

PATIENT

DRUGS (12)
  1. XPOVIO [Suspect]
     Active Substance: SELINEXOR
     Indication: Plasma cell myeloma
     Dosage: 80 MG, WEEKLY
     Route: 048
     Dates: start: 20220218, end: 2022
  2. XPOVIO [Suspect]
     Active Substance: SELINEXOR
     Dosage: 80 MG, 1X/2 WEEKS
     Route: 048
     Dates: start: 2022, end: 20220923
  3. XPOVIO [Suspect]
     Active Substance: SELINEXOR
     Dosage: 80 MG, 1X/2 WEEKS
     Route: 048
     Dates: start: 2022, end: 2022
  4. XPOVIO [Suspect]
     Active Substance: SELINEXOR
     Dosage: 80 MG, 1X/2 WEEKS
     Route: 048
  5. HYDROCHLOROTHIAZIDE [Concomitant]
     Active Substance: HYDROCHLOROTHIAZIDE
     Dosage: 25 MG
  6. ELIQUIS [Concomitant]
     Active Substance: APIXABAN
     Dosage: 5 MG
  7. PRILOSEC [Concomitant]
     Active Substance: OMEPRAZOLE MAGNESIUM
     Dosage: 20 UNK
  8. ACYCLOVIR [Concomitant]
     Active Substance: ACYCLOVIR
     Dosage: 400 MG
  9. DEXAMETHASONE PHOSPHATE [Concomitant]
     Active Substance: DEXAMETHASONE PHOSPHATE
     Dosage: 4 MG
  10. XGEVA [Concomitant]
     Active Substance: DENOSUMAB
     Dosage: INJECTION
  11. ZOFRAN [Concomitant]
     Active Substance: ONDANSETRON HYDROCHLORIDE
     Dosage: 4 MG
  12. COMPAZINE [Concomitant]
     Active Substance: PROCHLORPERAZINE MALEATE

REACTIONS (7)
  - Pneumonia [Unknown]
  - Dysgeusia [Unknown]
  - Fatigue [Recovering/Resolving]
  - Nausea [Not Recovered/Not Resolved]
  - Anaemia [Unknown]
  - Pneumonia [Unknown]
  - Product dose omission issue [Unknown]

NARRATIVE: CASE EVENT DATE: 20220101
